FAERS Safety Report 8157243-3 (Version None)
Quarter: 2012Q1

REPORT INFORMATION
  Report Type: 
  Country: None (occurrence: None)
  Receive Date: 20120222
  Receipt Date: 20120222
  Transmission Date: 20120608
  Serious: Yes (Life-Threatening)
  Sender: FDA-Public Use
  Company Number: None

PATIENT
  Age: 54 Year
  Sex: Male
  Weight: 84.5 kg

DRUGS (2)
  1. NEXAVAR [Suspect]
     Indication: HEPATIC NEOPLASM MALIGNANT
     Dosage: 400.0 MG
     Route: 048
     Dates: start: 20111107, end: 20120206
  2. LC BEAD -DOXORUBICIN ELUTING- [Concomitant]
     Indication: HEPATIC NEOPLASM MALIGNANT
     Dosage: 100MG
     Route: 013

REACTIONS (4)
  - CHOLANGITIS [None]
  - INCONTINENCE [None]
  - CHILLS [None]
  - FATIGUE [None]
